FAERS Safety Report 25776635 (Version 1)
Quarter: 2025Q3

REPORT INFORMATION
  Report Type: Spontaneous
  Country: US (occurrence: US)
  Receive Date: 20250909
  Receipt Date: 20250909
  Transmission Date: 20251021
  Serious: No
  Sender: DOMPE FARMACEUTICI
  Company Number: US-FARMAPROD-202503-0822

PATIENT
  Sex: Female

DRUGS (14)
  1. OXERVATE [Suspect]
     Active Substance: CENEGERMIN-BKBJ
     Indication: Neurotrophic keratopathy
     Route: 047
     Dates: start: 20250204
  2. XDEMVY [Concomitant]
     Active Substance: LOTILANER
  3. PROTONIX [Concomitant]
     Active Substance: PANTOPRAZOLE SODIUM
  4. ZYRTEC-D [Concomitant]
     Active Substance: CETIRIZINE HYDROCHLORIDE\PSEUDOEPHEDRINE HYDROCHLORIDE
  5. TYLENOL EXTRA STRENGTH [Concomitant]
     Active Substance: ACETAMINOPHEN
  6. MINOXIDIL [Concomitant]
     Active Substance: MINOXIDIL
  7. RETAINE PM [Concomitant]
     Active Substance: MINERAL OIL\PETROLATUM
  8. EZETIMIBE [Concomitant]
     Active Substance: EZETIMIBE
  9. GABAPENTIN [Concomitant]
     Active Substance: GABAPENTIN
  10. VALACYCLOVIR [Concomitant]
     Active Substance: VALACYCLOVIR HYDROCHLORIDE
  11. TRAZODONE HCL [Concomitant]
     Active Substance: TRAZODONE HYDROCHLORIDE
  12. CEQUA [Concomitant]
     Active Substance: CYCLOSPORINE
  13. TIMOLOL-DORZOLAMIDE-BIMATOPRST [Concomitant]
  14. TIMOLOL [Concomitant]
     Active Substance: TIMOLOL

REACTIONS (1)
  - Paranasal sinus hyposecretion [Unknown]
